FAERS Safety Report 6711969-4 (Version None)
Quarter: 2010Q2

REPORT INFORMATION
  Report Type: 
  Country: None (occurrence: None)
  Receive Date: 20100505
  Receipt Date: 20100427
  Transmission Date: 20101027
  Serious: Yes (Other)
  Sender: FDA-Public Use
  Company Number: GB-PFIZER INC-2010039744

PATIENT
  Age: 68 Year
  Sex: Female
  Weight: 76.19 kg

DRUGS (4)
  1. LIPITOR [Suspect]
     Indication: BLOOD CHOLESTEROL
     Dosage: 10 MG, ALTERNATE NIGHTS
     Dates: start: 20090301, end: 20100324
  2. AMLODIPINE [Concomitant]
     Dosage: 10 MG, 1X/DAY
  3. BECODISKS [Concomitant]
     Dosage: 400 MG, UNK
  4. SALBUTAMOL [Concomitant]

REACTIONS (6)
  - BALANCE DISORDER [None]
  - JOINT STIFFNESS [None]
  - LIMB DISCOMFORT [None]
  - PAIN IN EXTREMITY [None]
  - RESTLESS LEGS SYNDROME [None]
  - SENSATION OF HEAVINESS [None]
